FAERS Safety Report 9604484 (Version 1)
Quarter: 2013Q4

REPORT INFORMATION
  Report Type: Spontaneous
  Country: US (occurrence: US)
  Receive Date: 20131008
  Receipt Date: 20131008
  Transmission Date: 20140711
  Serious: Yes (Other)
  Sender: FDA-Public Use
  Company Number: US-PFIZER INC-2013286288

PATIENT
  Age: 52 Year
  Sex: Female
  Weight: 61.7 kg

DRUGS (2)
  1. LYRICA [Suspect]
     Indication: NEURALGIA
     Dosage: 225 MG, 2X/DAY
     Route: 048
     Dates: start: 2007
  2. CYMBALTA [Concomitant]
     Indication: DEPRESSION
     Dosage: 60 MG, 1X/DAY
     Dates: start: 2000

REACTIONS (3)
  - Non-Hodgkin^s lymphoma [Unknown]
  - Panic attack [Unknown]
  - Sleep disorder [Unknown]
